FAERS Safety Report 15979562 (Version 1)
Quarter: 2019Q1

REPORT INFORMATION
  Report Type: Report from Study
  Country: US (occurrence: US)
  Receive Date: 20190219
  Receipt Date: 20190219
  Transmission Date: 20190418
  Serious: No
  Sender: FDA-Public Use
  Company Number: US-IPSEN BIOPHARMACEUTICALS, INC.-2019-02248

PATIENT
  Sex: Female

DRUGS (1)
  1. SOMATULINE DEPOT [Suspect]
     Active Substance: LANREOTIDE ACETATE
     Indication: ACROMEGALY
     Dosage: UPPER OUTER BUTTOCKS, ROTATE BETWEEN SIDES
     Route: 058

REACTIONS (2)
  - Presyncope [Unknown]
  - Abdominal discomfort [Not Recovered/Not Resolved]
